FAERS Safety Report 6583355-1 (Version None)
Quarter: 2010Q1

REPORT INFORMATION
  Report Type: 
  Country: None (occurrence: None)
  Receive Date: 20100216
  Receipt Date: 20100208
  Transmission Date: 20100710
  Serious: Yes (Life-Threatening)
  Sender: FDA-Public Use
  Company Number: GB-TEVA-223705ISR

PATIENT

DRUGS (1)
  1. CODEINE SULFATE [Suspect]

REACTIONS (1)
  - ANAPHYLACTIC REACTION [None]
